FAERS Safety Report 8956654 (Version 3)
Quarter: 2013Q2

REPORT INFORMATION
  Report Type: Report from Study
  Country: JP (occurrence: JP)
  Receive Date: 20121210
  Receipt Date: 20130422
  Transmission Date: 20140414
  Serious: Yes (Other)
  Sender: FDA-Public Use
  Company Number: JP-JNJFOC-20121201045

PATIENT
  Age: 86 Year
  Sex: Female
  Weight: 41 kg

DRUGS (12)
  1. SIMPONI [Suspect]
     Indication: RHEUMATOID ARTHRITIS
     Route: 058
     Dates: start: 20121012
  2. SIMPONI [Suspect]
     Indication: RHEUMATOID ARTHRITIS
     Route: 058
     Dates: start: 20121109
  3. RHEUMATREX [Suspect]
     Indication: RHEUMATOID ARTHRITIS
     Route: 048
     Dates: start: 20121126, end: 20130111
  4. RHEUMATREX [Suspect]
     Indication: RHEUMATOID ARTHRITIS
     Route: 048
     Dates: start: 20060707, end: 20121125
  5. FOLIAMIN [Concomitant]
     Indication: PROPHYLAXIS
  6. ADALAT CR [Concomitant]
     Indication: HYPERTENSION
     Route: 048
  7. BAYASPIRIN [Concomitant]
     Indication: PERIPHERAL ARTERIAL OCCLUSIVE DISEASE
     Route: 048
  8. DIOVAN [Concomitant]
     Indication: HYPERTENSION
     Route: 048
  9. LIPITOR [Concomitant]
     Indication: HYPERLIPIDAEMIA
     Route: 048
  10. TAKEPRON [Concomitant]
     Indication: PROPHYLAXIS
  11. PANALDINE [Concomitant]
     Indication: PERIPHERAL ARTERIAL OCCLUSIVE DISEASE
     Route: 048
  12. AMPICILLIN SODIUM/SULBACTAM SODIUM [Concomitant]
     Route: 042

REACTIONS (1)
  - Pneumonia [Recovered/Resolved]
